FAERS Safety Report 17894816 (Version 1)
Quarter: 2020Q2

REPORT INFORMATION
  Report Type: Spontaneous
  Country: US (occurrence: US)
  Receive Date: 20200612
  Receipt Date: 20200612
  Transmission Date: 20200714
  Serious: Yes (Other)
  Sender: FDA-Public Use
  Company Number: None

PATIENT
  Age: 34 Year
  Sex: Female
  Weight: 72.45 kg

DRUGS (1)
  1. BUPRENORPHINE NALOXONE [Suspect]
     Active Substance: BUPRENORPHINE\NALOXONE
     Indication: DRUG DEPENDENCE
     Dosage: ?          QUANTITY:.75 FILMS;?
     Dates: start: 20200413, end: 20200512

REACTIONS (10)
  - Product substitution issue [None]
  - Drug ineffective [None]
  - Skin haemorrhage [None]
  - Pruritus [None]
  - Skin erosion [None]
  - Skin burning sensation [None]
  - Scab [None]
  - Rash [None]
  - Drug hypersensitivity [None]
  - Urticaria [None]

NARRATIVE: CASE EVENT DATE: 20200415
